FAERS Safety Report 7965993-4 (Version None)
Quarter: 2011Q4

REPORT INFORMATION
  Report Type: 
  Country: None (occurrence: None)
  Receive Date: 20111208
  Receipt Date: 20111202
  Transmission Date: 20120403
  Serious: No
  Sender: FDA-Public Use
  Company Number: US-ABBOTT-11P-163-0850136-00

PATIENT
  Sex: Male
  Weight: 88.076 kg

DRUGS (17)
  1. DILANTIN [Suspect]
     Indication: GRAND MAL CONVULSION
     Route: 048
     Dates: start: 19810101, end: 19820101
  2. BENADRYL [Concomitant]
     Indication: SEASONAL ALLERGY
  3. KLONOPIN [Concomitant]
     Indication: LOSS OF CONSCIOUSNESS
  4. KLONOPIN [Concomitant]
     Indication: STATUS EPILEPTICUS
  5. DILANTIN [Suspect]
     Dosage: 600MG DAILY, 300MG IN AM, 300MG IN PM
  6. FLONASE [Concomitant]
     Indication: MULTIPLE ALLERGIES
  7. BENADRYL [Concomitant]
     Indication: MULTIPLE ALLERGIES
  8. DILANTIN [Suspect]
     Dosage: 4 CAPSULES AT NIGHT DAILY
     Dates: start: 20040801, end: 20090101
  9. DILANTIN [Suspect]
     Dosage: ALTERNATE WITH 450MG  AND 400MG AT NIGHT
     Route: 048
     Dates: start: 20080101, end: 20090101
  10. ACETAMINOPHEN [Concomitant]
     Indication: NASOPHARYNGITIS
  11. KEPPRA [Concomitant]
     Indication: STATUS EPILEPTICUS
  12. DILANTIN [Suspect]
     Dosage: 5 CAPSULES AT NIGHT, DAILY
     Route: 048
     Dates: start: 20090101
  13. CAFFEINE CITRATE [Suspect]
     Indication: PRODUCT USED FOR UNKNOWN INDICATION
     Dates: start: 20100826
  14. SYNTHROID [Suspect]
     Indication: PRODUCT USED FOR UNKNOWN INDICATION
     Route: 048
     Dates: start: 20100810
  15. KEPPRA [Concomitant]
     Indication: CONVULSION
  16. ACETAMINOPHEN [Concomitant]
     Indication: INFLUENZA
  17. KEPPRA [Concomitant]
     Indication: LOSS OF CONSCIOUSNESS

REACTIONS (1)
  - FATIGUE [None]
